FAERS Safety Report 21607348 (Version 2)
Quarter: 2024Q3

REPORT INFORMATION
  Report Type: Spontaneous
  Country: IE (occurrence: IE)
  Receive Date: 20221117
  Receipt Date: 20240812
  Transmission Date: 20241017
  Serious: Yes (Disabling, Other)
  Sender: TEVA
  Company Number: IE-TEVA-2022-IE-2826020

PATIENT
  Age: 62 Year
  Sex: Male

DRUGS (1)
  1. ZOLEDRONIC ACID [Suspect]
     Active Substance: ZOLEDRONIC ACID
     Indication: Hyperparathyroidism primary
     Route: 041

REACTIONS (5)
  - Periorbital inflammation [Recovered/Resolved]
  - Conjunctival oedema [Recovered/Resolved]
  - Ophthalmoplegia [Recovered/Resolved]
  - Exophthalmos [Recovered/Resolved]
  - Visual acuity reduced [Recovered/Resolved]
